FAERS Safety Report 15605374 (Version 1)
Quarter: 2018Q4

REPORT INFORMATION
  Report Type: Spontaneous
  Country: ES (occurrence: ES)
  Receive Date: 20181112
  Receipt Date: 20181112
  Transmission Date: 20190205
  Serious: Yes (Life-Threatening, Hospitalization)
  Sender: FDA-Public Use
  Company Number: ES-TEVA-2018-ES-974639

PATIENT
  Age: 1 Year
  Sex: Male

DRUGS (2)
  1. AZITROMICINA (7019A) [Suspect]
     Active Substance: AZITHROMYCIN
     Dosage: 10 MG/KG DAILY; 10MG/KG/DIA
     Route: 048
     Dates: start: 20180130, end: 20180204
  2. PARACETAMOL (12A) [Suspect]
     Active Substance: ACETAMINOPHEN
     Dosage: 12MG/KG/6H
     Route: 048
     Dates: start: 20180130, end: 20180204

REACTIONS (1)
  - Acute hepatic failure [Recovered/Resolved]

NARRATIVE: CASE EVENT DATE: 20180206
